FAERS Safety Report 9129938 (Version 3)
Quarter: 2013Q1

REPORT INFORMATION
  Report Type: Spontaneous
  Country: JP (occurrence: JP)
  Receive Date: 20130122
  Receipt Date: 20130326
  Transmission Date: 20140127
  Serious: Yes (Hospitalization)
  Sender: FDA-Public Use
  Company Number: JP-009507513-1301JPN009325

PATIENT
  Age: 68 Year
  Sex: Male
  Weight: 58 kg

DRUGS (10)
  1. PEGINTRON [Suspect]
     Indication: CHRONIC HEPATITIS C
     Dosage: 1.37 MICROGRAM PER KILOGRAM, QW
     Route: 058
     Dates: start: 20121105, end: 20121216
  2. PEGINTRON [Suspect]
     Dosage: 1.03 MICROGRAM PER KILOGRAM, QW
     Route: 058
     Dates: start: 20121217, end: 20121224
  3. PEGINTRON [Suspect]
     Dosage: 1.37 MICROGRAM PER KILOGRAM, QW
     Route: 058
     Dates: start: 20121225
  4. REBETOL [Suspect]
     Indication: CHRONIC HEPATITIS C
     Dosage: 600 MG, QD
     Route: 048
     Dates: start: 20121105
  5. TELAVIC [Suspect]
     Indication: CHRONIC HEPATITIS C
     Dosage: 1.5 G, QD
     Route: 048
     Dates: start: 20121105, end: 20130104
  6. URSO [Concomitant]
     Indication: CHRONIC HEPATITIS C
     Dosage: 600 MG, QD
     Route: 048
  7. GASTER D [Concomitant]
     Indication: GASTRITIS
     Dosage: 40 MG, QD
     Route: 048
  8. FLOMOX [Concomitant]
     Indication: WOUND
     Dosage: 300 MG, QD
     Route: 048
     Dates: start: 20121106, end: 20121109
  9. ZYLORIC [Concomitant]
     Indication: PROPHYLAXIS
     Dosage: 300 MG, QD
     Route: 048
     Dates: start: 20121109, end: 20130104
  10. ZYLORIC [Concomitant]
     Indication: BLOOD URIC ACID INCREASED

REACTIONS (2)
  - Rash [Not Recovered/Not Resolved]
  - Drug eruption [Recovering/Resolving]
